FAERS Safety Report 24888387 (Version 1)
Quarter: 2025Q1

REPORT INFORMATION
  Report Type: Spontaneous
  Country: US (occurrence: US)
  Receive Date: 20250127
  Receipt Date: 20250127
  Transmission Date: 20250409
  Serious: Yes (Other)
  Sender: COOPERSURGICAL
  Company Number: US-COOPERSURGICAL, INC.-2025CPS000316

PATIENT
  Age: 30 Year
  Sex: Female
  Weight: 90.703 kg

DRUGS (1)
  1. PARAGARD T 380A [Suspect]
     Active Substance: COPPER
     Indication: Contraception
     Route: 015
     Dates: start: 2000

REACTIONS (12)
  - Uterine leiomyoma [Not Recovered/Not Resolved]
  - Device breakage [Not Recovered/Not Resolved]
  - Foreign body in reproductive tract [Not Recovered/Not Resolved]
  - Complication of device removal [Not Recovered/Not Resolved]
  - Uterine perforation [Recovered/Resolved]
  - Emotional distress [Not Recovered/Not Resolved]
  - Infection [Unknown]
  - Heavy menstrual bleeding [Unknown]
  - Depression [Unknown]
  - Anxiety [Unknown]
  - Abnormal uterine bleeding [Unknown]
  - Abdominal pain [Unknown]

NARRATIVE: CASE EVENT DATE: 20070401
